FAERS Safety Report 9149896 (Version 1)
Quarter: 2013Q1

REPORT INFORMATION
  Report Type: Spontaneous
  Country: US (occurrence: None)
  Receive Date: 20130308
  Receipt Date: 20130308
  Transmission Date: 20140127
  Serious: Yes (Other)
  Sender: FDA-Public Use
  Company Number: None

PATIENT
  Age: 93 Year
  Sex: Male

DRUGS (3)
  1. CEFUROXIME [Suspect]
     Dosage: 1MG/0.1ML ONCE INTRACAMERAL
     Dates: start: 20120523
  2. DUOVISC KIT [Concomitant]
  3. POVIDONE OR PREP SOLUTION [Concomitant]

REACTIONS (3)
  - Eye swelling [None]
  - Eye discharge [None]
  - Mental status changes [None]
